FAERS Safety Report 9550166 (Version 4)
Quarter: 2013Q4

REPORT INFORMATION
  Report Type: Report from Study
  Country: BR (occurrence: BR)
  Receive Date: 20130924
  Receipt Date: 20131126
  Transmission Date: 20140711
  Serious: Yes (Other)
  Sender: FDA-Public Use
  Company Number: PHHY2013BR106188

PATIENT
  Sex: Female
  Weight: 60 kg

DRUGS (7)
  1. ACLASTA [Suspect]
     Indication: OSTEOPOROSIS
     Dosage: 5 MG/100 ML
     Route: 042
     Dates: start: 2008
  2. ACLASTA [Suspect]
     Dosage: 5 MG/100 ML
     Route: 042
     Dates: start: 201306
  3. METICORTEN [Concomitant]
     Dosage: 5 MG, UNK
     Dates: start: 1983
  4. REUQUINOL [Concomitant]
     Dosage: 400 MG, UNK
     Dates: start: 1983
  5. HIPERTIL [Concomitant]
     Dosage: UNK UKN, UNK
     Dates: start: 2002
  6. PRESSAT [Concomitant]
     Dosage: 2.5 MG, UNK
  7. SOMALGIN [Concomitant]
     Dosage: 81 MG, UNK

REACTIONS (7)
  - Multiple fractures [Recovered/Resolved]
  - Foot fracture [Recovered/Resolved]
  - Upper limb fracture [Recovered/Resolved]
  - Pain [Recovered/Resolved]
  - Hand fracture [Recovered/Resolved]
  - Fall [Recovered/Resolved]
  - Ligament sprain [Recovered/Resolved]
